FAERS Safety Report 6273685-5 (Version None)
Quarter: 2009Q3

REPORT INFORMATION
  Report Type: 
  Country: None (occurrence: None)
  Receive Date: 20090713
  Receipt Date: 20080702
  Transmission Date: 20100115
  Serious: Yes (Life-Threatening, Hospitalization)
  Sender: FDA-Public Use
  Company Number: 573645

PATIENT
  Age: 57 Year
  Sex: Female

DRUGS (2)
  1. BONIVA [Suspect]
     Indication: OSTEOPOROSIS
     Dates: start: 20080303
  2. UNSPECIFIED MEDICATION (GENERIC UNKNOWN) [Concomitant]

REACTIONS (3)
  - DRUG INTOLERANCE [None]
  - ILL-DEFINED DISORDER [None]
  - MALAISE [None]
